FAERS Safety Report 4694803-6 (Version None)
Quarter: 2005Q2

REPORT INFORMATION
  Report Type: 
  Country: None (occurrence: None)
  Receive Date: 20050620
  Receipt Date: 20050606
  Transmission Date: 20051028
  Serious: Yes (Hospitalization, Other)
  Sender: FDA-Public Use
  Company Number: GB-JNJFOC-20050601588

PATIENT
  Sex: Male
  Weight: 82 kg

DRUGS (10)
  1. REMICADE [Suspect]
     Indication: RHEUMATOID ARTHRITIS
     Route: 042
  2. LANSOPRAZOLE [Concomitant]
  3. PREDNISOLONE [Concomitant]
  4. BENDROFLUAZIDE [Concomitant]
  5. ISOSORBIDE MONONITRATE [Concomitant]
  6. ASPIRIN [Concomitant]
  7. ATORVASTATIN CALCIUM [Concomitant]
  8. NAPROXEN [Concomitant]
  9. AMITRIPTYLINE [Concomitant]
  10. METHOTREXATE [Concomitant]

REACTIONS (1)
  - EPISTAXIS [None]
